FAERS Safety Report 16932358 (Version 1)
Quarter: 2019Q4

REPORT INFORMATION
  Report Type: Spontaneous
  Country: US (occurrence: US)
  Receive Date: 20191017
  Receipt Date: 20191017
  Transmission Date: 20200122
  Serious: No
  Sender: FDA-Public Use
  Company Number: US-C B FLEET CO INC-201908-US-002403

PATIENT
  Sex: Female

DRUGS (2)
  1. MONISTAT 3 COMBINATION PACK [Suspect]
     Active Substance: MICONAZOLE NITRATE
     Indication: VULVOVAGINAL PRURITUS
     Dosage: UNKNOWN DOSAGE
     Route: 067
     Dates: start: 20190723
  2. BABY ASPIRIN [Concomitant]
     Active Substance: ASPIRIN

REACTIONS (2)
  - Vaginal haemorrhage [Not Recovered/Not Resolved]
  - Vulvovaginal pain [Recovered/Resolved]
